FAERS Safety Report 8073229-1 (Version None)
Quarter: 2012Q1

REPORT INFORMATION
  Report Type: 
  Country: None (occurrence: None)
  Receive Date: 20120126
  Receipt Date: 20120118
  Transmission Date: 20120608
  Serious: Yes (Other)
  Sender: FDA-Public Use
  Company Number: PHEH2012US001678

PATIENT
  Age: 68 Year
  Sex: Female

DRUGS (3)
  1. CHEMOTHERAPEUTICS [Suspect]
  2. DENOSUMAB [Suspect]
  3. ZOMETA [Suspect]
     Indication: METASTASES TO BONE
     Dates: start: 20090701, end: 20101001

REACTIONS (3)
  - TOOTH LOSS [None]
  - RENAL DISORDER [None]
  - GINGIVAL SWELLING [None]
